FAERS Safety Report 26208890 (Version 1)
Quarter: 2025Q4

REPORT INFORMATION
  Report Type: Report from Study
  Country: EU (occurrence: EU)
  Receive Date: 20251229
  Receipt Date: 20251229
  Transmission Date: 20260118
  Serious: Yes (Hospitalization)
  Sender: MYLAN
  Company Number: EU-JNJFOC-20251205902

PATIENT
  Sex: Male
  Weight: 76 kg

DRUGS (32)
  1. LENALIDOMIDE [Suspect]
     Active Substance: LENALIDOMIDE
     Indication: Product used for unknown indication
     Dosage: 5 MILLIGRAM (LAST DOSE BEFORE EVENT 05-OCT-2025)
     Dates: start: 20250922, end: 20251005
  2. LENALIDOMIDE [Suspect]
     Active Substance: LENALIDOMIDE
     Dosage: 5 MILLIGRAM (LAST DOSE BEFORE EVENT 05-OCT-2025)
     Route: 065
     Dates: start: 20250922, end: 20251005
  3. LENALIDOMIDE [Suspect]
     Active Substance: LENALIDOMIDE
     Dosage: 5 MILLIGRAM (LAST DOSE BEFORE EVENT 05-OCT-2025)
     Route: 065
     Dates: start: 20250922, end: 20251005
  4. LENALIDOMIDE [Suspect]
     Active Substance: LENALIDOMIDE
     Dosage: 5 MILLIGRAM (LAST DOSE BEFORE EVENT 05-OCT-2025)
     Dates: start: 20250922, end: 20251005
  5. BORTEZOMIB [Suspect]
     Active Substance: BORTEZOMIB
     Indication: Plasma cell myeloma
     Dosage: 2.5 MILLIGRAM (LAST DOSE BEFORE EVENT 22-SEP-2025)
     Dates: start: 20250901, end: 20251002
  6. BORTEZOMIB [Suspect]
     Active Substance: BORTEZOMIB
     Dosage: 2.5 MILLIGRAM (LAST DOSE BEFORE EVENT 22-SEP-2025)
     Route: 065
     Dates: start: 20250901, end: 20251002
  7. BORTEZOMIB [Suspect]
     Active Substance: BORTEZOMIB
     Dosage: 2.5 MILLIGRAM (LAST DOSE BEFORE EVENT 22-SEP-2025)
     Route: 065
     Dates: start: 20250901, end: 20251002
  8. BORTEZOMIB [Suspect]
     Active Substance: BORTEZOMIB
     Dosage: 2.5 MILLIGRAM (LAST DOSE BEFORE EVENT 22-SEP-2025)
     Dates: start: 20250901, end: 20251002
  9. DARATUMUMAB [Suspect]
     Active Substance: DARATUMUMAB
     Indication: Plasma cell myeloma
     Dosage: 1800 MILLIGRAM (LAST DOSE BEFORE EVENT 22-SEP-2025)
     Dates: start: 20250901, end: 20250929
  10. DARATUMUMAB [Suspect]
     Active Substance: DARATUMUMAB
     Dosage: 1800 MILLIGRAM (LAST DOSE BEFORE EVENT 22-SEP-2025)
     Dates: start: 20250901, end: 20250929
  11. DARATUMUMAB [Suspect]
     Active Substance: DARATUMUMAB
     Dosage: 1800 MILLIGRAM (LAST DOSE BEFORE EVENT 22-SEP-2025)
     Route: 058
     Dates: start: 20250901, end: 20250929
  12. DARATUMUMAB [Suspect]
     Active Substance: DARATUMUMAB
     Dosage: 1800 MILLIGRAM (LAST DOSE BEFORE EVENT 22-SEP-2025)
     Route: 058
     Dates: start: 20250901, end: 20250929
  13. DARATUMUMAB [Suspect]
     Active Substance: DARATUMUMAB
     Dosage: 1800 MILLIGRAM
  14. DARATUMUMAB [Suspect]
     Active Substance: DARATUMUMAB
     Dosage: 1800 MILLIGRAM
  15. DARATUMUMAB [Suspect]
     Active Substance: DARATUMUMAB
     Dosage: 1800 MILLIGRAM
     Route: 058
  16. DARATUMUMAB [Suspect]
     Active Substance: DARATUMUMAB
     Dosage: 1800 MILLIGRAM
     Route: 058
  17. METOPROLOL SUCCINATE [Concomitant]
     Active Substance: METOPROLOL SUCCINATE
     Indication: Product used for unknown indication
     Dosage: 23 MILLIGRAM, BID (23,75 MG/-47,5 MG/-95 MG/-190 MG)
     Route: 061
     Dates: start: 202510
  18. METOPROLOL SUCCINATE [Concomitant]
     Active Substance: METOPROLOL SUCCINATE
     Dosage: 23 MILLIGRAM, BID (23,75 MG/-47,5 MG/-95 MG/-190 MG)
     Route: 048
     Dates: start: 202510
  19. METOPROLOL SUCCINATE [Concomitant]
     Active Substance: METOPROLOL SUCCINATE
     Dosage: 23 MILLIGRAM, BID (23,75 MG/-47,5 MG/-95 MG/-190 MG)
     Route: 048
     Dates: start: 202510
  20. METOPROLOL SUCCINATE [Concomitant]
     Active Substance: METOPROLOL SUCCINATE
     Dosage: 23 MILLIGRAM, BID (23,75 MG/-47,5 MG/-95 MG/-190 MG)
     Route: 061
     Dates: start: 202510
  21. CLOPIDOGREL [Concomitant]
     Active Substance: CLOPIDOGREL BISULFATE
     Indication: Product used for unknown indication
     Dosage: 75 MILLIGRAM, QD
     Route: 061
     Dates: start: 20210226
  22. CLOPIDOGREL [Concomitant]
     Active Substance: CLOPIDOGREL BISULFATE
     Dosage: 75 MILLIGRAM, QD
     Route: 048
     Dates: start: 20210226
  23. CLOPIDOGREL [Concomitant]
     Active Substance: CLOPIDOGREL BISULFATE
     Dosage: 75 MILLIGRAM, QD
     Route: 048
     Dates: start: 20210226
  24. CLOPIDOGREL [Concomitant]
     Active Substance: CLOPIDOGREL BISULFATE
     Dosage: 75 MILLIGRAM, QD
     Route: 061
     Dates: start: 20210226
  25. ATORVASTATIN [Concomitant]
     Active Substance: ATORVASTATIN
     Indication: Product used for unknown indication
     Dosage: 40 MILLIGRAM, QD
     Route: 061
     Dates: start: 20210226
  26. ATORVASTATIN [Concomitant]
     Active Substance: ATORVASTATIN
     Dosage: 40 MILLIGRAM, QD
     Route: 048
     Dates: start: 20210226
  27. ATORVASTATIN [Concomitant]
     Active Substance: ATORVASTATIN
     Dosage: 40 MILLIGRAM, QD
     Route: 048
     Dates: start: 20210226
  28. ATORVASTATIN [Concomitant]
     Active Substance: ATORVASTATIN
     Dosage: 40 MILLIGRAM, QD
     Route: 061
     Dates: start: 20210226
  29. EMPAGLIFLOZIN [Concomitant]
     Active Substance: EMPAGLIFLOZIN
     Indication: Product used for unknown indication
     Dosage: 10 MILLIGRAM, QD
     Route: 061
     Dates: start: 20210226
  30. EMPAGLIFLOZIN [Concomitant]
     Active Substance: EMPAGLIFLOZIN
     Dosage: 10 MILLIGRAM, QD
     Route: 048
     Dates: start: 20210226
  31. EMPAGLIFLOZIN [Concomitant]
     Active Substance: EMPAGLIFLOZIN
     Dosage: 10 MILLIGRAM, QD
     Route: 048
     Dates: start: 20210226
  32. EMPAGLIFLOZIN [Concomitant]
     Active Substance: EMPAGLIFLOZIN
     Dosage: 10 MILLIGRAM, QD
     Route: 061
     Dates: start: 20210226

REACTIONS (2)
  - Atrioventricular block [Recovered/Resolved]
  - Syncope [Recovered/Resolved]

NARRATIVE: CASE EVENT DATE: 20251005
